FAERS Safety Report 14223319 (Version 3)
Quarter: 2020Q3

REPORT INFORMATION
  Report Type: Report from Study
  Country: US (occurrence: US)
  Receive Date: 20171124
  Receipt Date: 20200907
  Transmission Date: 20201102
  Serious: No
  Sender: FDA-Public Use
  Company Number: PHEH2017US037984

PATIENT
  Sex: Female

DRUGS (2)
  1. AFINITOR [Suspect]
     Active Substance: EVEROLIMUS
     Indication: ASTROCYTOMA, LOW GRADE
     Dosage: 5 MG, QD
     Route: 048
  2. AFINITOR [Suspect]
     Active Substance: EVEROLIMUS
     Indication: TUBEROUS SCLEROSIS COMPLEX
     Dosage: 5 MG
     Route: 048
     Dates: start: 20110222

REACTIONS (4)
  - Headache [Recovered/Resolved]
  - Hormone level abnormal [Unknown]
  - Product dose omission issue [Recovered/Resolved]
  - Menstruation irregular [Not Recovered/Not Resolved]
